FAERS Safety Report 12198330 (Version 2)
Quarter: 2016Q3

REPORT INFORMATION
  Report Type: Spontaneous
  Country: US (occurrence: US)
  Receive Date: 20160322
  Receipt Date: 20160705
  Transmission Date: 20161109
  Serious: Yes (Other)
  Sender: FDA-Public Use
  Company Number: US-JNJFOC-20160307993

PATIENT
  Sex: Male

DRUGS (1)
  1. RISPERDAL [Suspect]
     Active Substance: RISPERIDONE
     Indication: BIPOLAR DISORDER
     Route: 048
     Dates: start: 200503, end: 200812

REACTIONS (4)
  - Hyperglycaemia [Unknown]
  - Gynaecomastia [Unknown]
  - Suicidal ideation [Unknown]
  - Abnormal weight gain [Unknown]
